FAERS Safety Report 5244930-X (Version None)
Quarter: 2007Q1

REPORT INFORMATION
  Report Type: 
  Country: None (occurrence: None)
  Receive Date: 20070221
  Receipt Date: 20070221
  Transmission Date: 20070707
  Serious: Yes (Death)
  Sender: FDA-Public Use
  Company Number: None

PATIENT
  Sex: Female

DRUGS (13)
  1. BORTEZOMIB 1.3MG/M2 (2.5MG) IV 1/14/06 + 1/17/06 [Suspect]
     Indication: MANTLE CELL LYMPHOMA
     Dosage: 1.3MG/M2 (2.5MG) IV
     Route: 042
     Dates: start: 20051222, end: 20051226
  2. RITUXIMAB 71.5 MG 1/13/06 IV [Suspect]
     Dosage: 71.5 MG 1/13/06 IV
     Route: 042
     Dates: start: 20051222, end: 20051226
  3. CYCLOPHOSPHAMIDE 570MG IV X 6 DOSES 1/14 - 1/16/2006 [Suspect]
     Dosage: 570MG IV X 6 DOSES
     Route: 042
     Dates: start: 20060113, end: 20060117
  4. DOXORUBICIN 47.5 MG IV 1/14/06, 1/15/06 [Suspect]
     Dosage: 47.5 MG IV
     Route: 042
     Dates: start: 20060113, end: 20060117
  5. VINCRISTINE 2 MG IV 1/17/06 [Suspect]
     Dosage: 2 MG IV
     Dates: start: 20060113, end: 20060117
  6. DEXAMETHASONE 40MG PO 1/14-1/17/06 [Suspect]
  7. ALLOPURINOL [Concomitant]
  8. ACYCLOVIR [Concomitant]
  9. FLUCONAZOLE [Concomitant]
  10. NEULASTA [Concomitant]
  11. LORAZEPAM [Concomitant]
  12. FUROSEMIDE [Concomitant]
  13. TRIMETHOPRIM + SULFAMETHOXAZOLE [Concomitant]

REACTIONS (1)
  - DISEASE PROGRESSION [None]
